FAERS Safety Report 14982368 (Version 1)
Quarter: 2018Q2

REPORT INFORMATION
  Report Type: Spontaneous
  Country: US (occurrence: US)
  Receive Date: 20180607
  Receipt Date: 20180607
  Transmission Date: 20180711
  Serious: Yes (Hospitalization, Other)
  Sender: FDA-Public Use
  Company Number: US-ASTELLAS-2018US025603

PATIENT
  Age: 55 Year
  Sex: Female

DRUGS (1)
  1. TACROLIMUS. [Suspect]
     Active Substance: TACROLIMUS
     Indication: LIVER TRANSPLANT
     Dosage: UNK, UNKNOWN FREQ.
     Route: 065

REACTIONS (6)
  - Acute kidney injury [Recovered/Resolved]
  - Hypersensitivity vasculitis [Recovered/Resolved]
  - Clostridium difficile infection [Recovered/Resolved]
  - Cryoglobulinaemia [Recovered/Resolved]
  - Bile duct stenosis [Recovered/Resolved]
  - Acute left ventricular failure [Recovered/Resolved]
